FAERS Safety Report 17345950 (Version 1)
Quarter: 2020Q1

REPORT INFORMATION
  Report Type: Spontaneous
  Country: US (occurrence: US)
  Receive Date: 20200114
  Receipt Date: 20200114
  Transmission Date: 20200409
  Serious: Yes (Hospitalization)
  Sender: FDA-Public Use
  Company Number: None

PATIENT
  Age: 61 Year
  Sex: Female

DRUGS (15)
  1. METFORMIN [Concomitant]
     Active Substance: METFORMIN HYDROCHLORIDE
  2. CARVEDILOL. [Concomitant]
     Active Substance: CARVEDILOL
  3. ENALAPRIL [Concomitant]
     Active Substance: ENALAPRIL
  4. THEOPHYLLINE [Concomitant]
     Active Substance: THEOPHYLLINE ANHYDROUS
  5. MONTELUKAST [Concomitant]
     Active Substance: MONTELUKAST SODIUM
  6. SILDENAFIL 20MG TAB [Suspect]
     Active Substance: SILDENAFIL
     Indication: PULMONARY HYPERTENSION
     Route: 048
     Dates: start: 20181204
  7. ANORO ELLIPT AER [Concomitant]
  8. BASAGLAR [Concomitant]
     Active Substance: INSULIN GLARGINE
  9. CETIRIZINE [Concomitant]
     Active Substance: CETIRIZINE HYDROCHLORIDE
  10. NOVOLOG [Concomitant]
     Active Substance: INSULIN ASPART
  11. SERTRALINE [Concomitant]
     Active Substance: SERTRALINE HYDROCHLORIDE
  12. ELIQUIS [Concomitant]
     Active Substance: APIXABAN
  13. PIOGLITAZONE. [Concomitant]
     Active Substance: PIOGLITAZONE
  14. RANITIDINE. [Concomitant]
     Active Substance: RANITIDINE
  15. ROSUVASTATIN. [Concomitant]
     Active Substance: ROSUVASTATIN

REACTIONS (2)
  - Fall [None]
  - Wrist fracture [None]

NARRATIVE: CASE EVENT DATE: 20191219
